FAERS Safety Report 21479879 (Version 2)
Quarter: 2024Q2

REPORT INFORMATION
  Report Type: Spontaneous
  Country: PL (occurrence: PL)
  Receive Date: 20221019
  Receipt Date: 20240531
  Transmission Date: 20240716
  Serious: Yes (Other)
  Sender: FDA-Public Use
  Company Number: PL-SERVIER-S21014521

PATIENT
  Age: 49 Year
  Sex: Female

DRUGS (7)
  1. FLUOROURACIL [Suspect]
     Active Substance: FLUOROURACIL
     Indication: Adenocarcinoma pancreas
     Dosage: UNK UNK, CYCLE
     Route: 065
     Dates: start: 20200704
  2. FLUOROURACIL [Suspect]
     Active Substance: FLUOROURACIL
     Dosage: UNK UNK, CYCLE (LF4 REGIMEN)
     Route: 065
     Dates: start: 202010
  3. FLUOROURACIL [Suspect]
     Active Substance: FLUOROURACIL
     Dosage: UNK UNK, CYCLE (7TH CYCLE)
     Route: 065
     Dates: start: 20201021
  4. LEUCOVORIN [Suspect]
     Active Substance: LEUCOVORIN\LEUCOVORIN CALCIUM
     Indication: Adenocarcinoma pancreas
     Dosage: UNK UNK, CYCLE (7TH CYCLE)
     Route: 065
     Dates: start: 20200704
  5. LEUCOVORIN [Suspect]
     Active Substance: LEUCOVORIN\LEUCOVORIN CALCIUM
     Dosage: UNK UNK, CYCLE (LF4 REGIMEN)
     Route: 065
     Dates: start: 202010
  6. LEUCOVORIN [Suspect]
     Active Substance: LEUCOVORIN\LEUCOVORIN CALCIUM
     Dosage: 7TH CYCLE
     Route: 065
     Dates: start: 20201021
  7. ONIVYDE [Suspect]
     Active Substance: IRINOTECAN HYDROCHLORIDE
     Indication: Adenocarcinoma pancreas
     Dosage: UNK UNK, CYCLE (7TH CYCLE)
     Route: 065
     Dates: start: 20200704

REACTIONS (8)
  - Hyperbilirubinaemia [Unknown]
  - Cholangitis [Unknown]
  - Disease progression [Unknown]
  - Condition aggravated [Unknown]
  - Cachexia [Unknown]
  - Anaemia [Unknown]
  - Leukopenia [Unknown]
  - Hypertransaminasaemia [Unknown]

NARRATIVE: CASE EVENT DATE: 20200801
